FAERS Safety Report 22337999 (Version 2)
Quarter: 2024Q4

REPORT INFORMATION
  Report Type: Spontaneous
  Country: US (occurrence: US)
  Receive Date: 20230518
  Receipt Date: 20241219
  Transmission Date: 20250115
  Serious: No
  Sender: MERCK
  Company Number: US-009507513-2304USA009744

PATIENT
  Age: 76 Year
  Sex: Female
  Weight: 60.317 kg

DRUGS (2)
  1. INTRON A [Suspect]
     Active Substance: INTERFERON ALFA-2B
     Indication: Bladder cancer
     Dosage: 50-MILLION UNITS, QW
     Dates: start: 201706
  2. TICE BCG [Concomitant]
     Active Substance: BACILLUS CALMETTE-GUERIN SUBSTRAIN TICE LIVE ANTIGEN
     Indication: Bladder cancer
     Dosage: 1/3 DOSE, QW
     Route: 043
     Dates: start: 201706

REACTIONS (1)
  - Product use in unapproved indication [Unknown]

NARRATIVE: CASE EVENT DATE: 20170601
